FAERS Safety Report 22642455 (Version 6)
Quarter: 2025Q3

REPORT INFORMATION
  Report Type: Report from Study
  Country: KR (occurrence: KR)
  Receive Date: 20230626
  Receipt Date: 20250924
  Transmission Date: 20251021
  Serious: Yes (Hospitalization)
  Sender: ABBVIE
  Company Number: KR-ABBVIE-5302995

PATIENT
  Age: 46 Year
  Sex: Male
  Weight: 84 kg

DRUGS (7)
  1. SKYRIZI [Suspect]
     Active Substance: RISANKIZUMAB-RZAA
     Indication: Psoriasis
     Route: 058
     Dates: start: 20220818, end: 20220818
  2. SKYRIZI [Suspect]
     Active Substance: RISANKIZUMAB-RZAA
     Route: 058
     Dates: start: 20221222, end: 20221222
  3. SKYRIZI [Suspect]
     Active Substance: RISANKIZUMAB-RZAA
     Route: 058
     Dates: start: 20220915, end: 20220915
  4. SKYRIZI [Suspect]
     Active Substance: RISANKIZUMAB-RZAA
     Route: 058
     Dates: start: 20230316, end: 20230316
  5. SKYRIZI [Suspect]
     Active Substance: RISANKIZUMAB-RZAA
     Route: 058
     Dates: start: 20230807, end: 20230807
  6. CELEBREX [Concomitant]
     Active Substance: CELECOXIB
     Indication: Pain management
     Dosage: 200MG
     Route: 048
     Dates: start: 20230615, end: 20230619
  7. TRIAMCINOLONE [Concomitant]
     Active Substance: TRIAMCINOLONE
     Indication: Pain management
     Route: 030
     Dates: start: 20230616, end: 20230616

REACTIONS (3)
  - Polymyalgia rheumatica [Recovered/Resolved]
  - COVID-19 [Recovered/Resolved]
  - Arthralgia [Recovered/Resolved]

NARRATIVE: CASE EVENT DATE: 20221212
